FAERS Safety Report 9690978 (Version 1)
Quarter: 2013Q4

REPORT INFORMATION
  Report Type: Spontaneous
  Country: US (occurrence: None)
  Receive Date: 20131114
  Receipt Date: 20131114
  Transmission Date: 20140711
  Serious: Yes (Death)
  Sender: FDA-Public Use
  Company Number: None

PATIENT
  Age: 81 Year
  Sex: Female
  Weight: 57.9 kg

DRUGS (2)
  1. WARFARIN [Suspect]
     Indication: ATRIAL FIBRILLATION
     Dosage: 1 TABLET, VARIES, QD, ORAL
     Route: 048
  2. WARFARIN [Suspect]
     Indication: CEREBROVASCULAR ACCIDENT
     Dosage: 1 TABLET, VARIES, QD, ORAL
     Route: 048

REACTIONS (4)
  - Fall [None]
  - Mental status changes [None]
  - Haemorrhage intracranial [None]
  - International normalised ratio increased [None]
